FAERS Safety Report 5241526-0 (Version None)
Quarter: 2007Q1

REPORT INFORMATION
  Report Type: 
  Country: None (occurrence: None)
  Receive Date: 20070220
  Receipt Date: 20070209
  Transmission Date: 20070707
  Serious: Yes (Hospitalization)
  Sender: FDA-Public Use
  Company Number: FR-GLAXOSMITHKLINE-B0458382A

PATIENT
  Age: 85 Year
  Sex: Male

DRUGS (8)
  1. FORTUM [Suspect]
     Indication: POST PROCEDURAL INFECTION
     Dosage: 2G TWICE PER DAY
     Route: 042
     Dates: start: 20061214, end: 20061221
  2. BACTRIM [Suspect]
     Indication: POST PROCEDURAL INFECTION
     Dosage: 3TABS PER DAY
     Route: 048
     Dates: start: 20061214, end: 20070121
  3. CIPROFLOXACIN [Suspect]
     Indication: POST PROCEDURAL INFECTION
     Dosage: 500MG THREE TIMES PER DAY
     Route: 048
     Dates: start: 20061214, end: 20061221
  4. PAROXETINE HCL [Concomitant]
     Dates: end: 20070121
  5. LASIX [Concomitant]
     Dates: end: 20070121
  6. KARDEGIC [Concomitant]
     Dates: end: 20070121
  7. LEXOMIL [Concomitant]
     Dates: end: 20070121
  8. OXYGEN [Concomitant]

REACTIONS (4)
  - RASH MACULO-PAPULAR [None]
  - RASH PAPULAR [None]
  - RASH PRURITIC [None]
  - SKIN EXFOLIATION [None]
